FAERS Safety Report 16686893 (Version 1)
Quarter: 2019Q3

REPORT INFORMATION
  Report Type: Spontaneous
  Country: AT (occurrence: AT)
  Receive Date: 20190809
  Receipt Date: 20190809
  Transmission Date: 20191004
  Serious: Yes (Death)
  Sender: FDA-Public Use
  Company Number: AT-ACCORD-150977

PATIENT
  Age: 60 Year
  Sex: Female
  Weight: 80 kg

DRUGS (3)
  1. SCABIORAL [Suspect]
     Active Substance: IVERMECTIN
     Indication: ACARODERMATITIS
     Dosage: 4 HOURS, 3 MG TABLETS
     Route: 048
     Dates: start: 20190719, end: 20190719
  2. MONTELUKAST [Suspect]
     Active Substance: MONTELUKAST SODIUM
     Indication: ASTHMA
     Dosage: 5 MG 1X, RUNNING
     Route: 048
  3. DICLOBENE [Suspect]
     Active Substance: DICLOFENAC SODIUM
     Indication: ABDOMINAL PAIN
     Dosage: 2 X 75 MG I.V., 75 MG - AMPOULES
     Route: 042
     Dates: start: 20190719, end: 20190721

REACTIONS (2)
  - Hepatotoxicity [Fatal]
  - Acute hepatic failure [Fatal]

NARRATIVE: CASE EVENT DATE: 20190721
